FAERS Safety Report 18483925 (Version 1)
Quarter: 2020Q4

REPORT INFORMATION
  Report Type: Other
  Country: SE (occurrence: US)
  Receive Date: 20201109
  Receipt Date: 20201109
  Transmission Date: 20210114
  Serious: Yes (Other)
  Sender: FDA-Public Use
  Company Number: SE-ROCHE-2703969

PATIENT

DRUGS (2)
  1. OCRELIZUMAB. [Suspect]
     Active Substance: OCRELIZUMAB
     Dosage: EVERY 5-7 MONTHS
     Route: 042
  2. OCRELIZUMAB. [Suspect]
     Active Substance: OCRELIZUMAB
     Indication: RELAPSING-REMITTING MULTIPLE SCLEROSIS
     Dosage: 2 INFUSIONS
     Route: 042

REACTIONS (14)
  - Pneumonia [Unknown]
  - Infusion related reaction [Unknown]
  - Sinusitis [Unknown]
  - Appendicitis [Unknown]
  - Stevens-Johnson syndrome [Unknown]
  - Diverticulitis [Unknown]
  - Urinary tract infection [Unknown]
  - Blood immunoglobulin G decreased [Unknown]
  - Blood immunoglobulin M decreased [Unknown]
  - Sepsis [Unknown]
  - Bronchitis [Unknown]
  - Lymphopenia [Unknown]
  - Anaemia [Unknown]
  - Drug ineffective [Unknown]
